FAERS Safety Report 15130840 (Version 4)
Quarter: 2019Q2

REPORT INFORMATION
  Report Type: Report from Study
  Country: US (occurrence: US)
  Receive Date: 20180711
  Receipt Date: 20190408
  Transmission Date: 20190711
  Serious: Yes (Hospitalization)
  Sender: FDA-Public Use
  Company Number: US-ACTELION-A-NJ2018-175089

PATIENT
  Age: 55 Year
  Sex: Female

DRUGS (17)
  1. OPSUMIT [Suspect]
     Active Substance: MACITENTAN
     Indication: PULMONARY ARTERIAL HYPERTENSION
     Dosage: 10 MG, QD
     Route: 048
     Dates: start: 201610, end: 20190309
  2. MELATONIN [Concomitant]
     Active Substance: MELATONIN
  3. FUROSEMIDE. [Concomitant]
     Active Substance: FUROSEMIDE
  4. ELIQUIS [Concomitant]
     Active Substance: APIXABAN
  5. GLIPIZIDE. [Concomitant]
     Active Substance: GLIPIZIDE
  6. POTASSIUM CHLORIDE. [Concomitant]
     Active Substance: POTASSIUM CHLORIDE
  7. LISINOPRIL. [Concomitant]
     Active Substance: LISINOPRIL
  8. AMIODARONE [Concomitant]
     Active Substance: AMIODARONE
  9. ASA [Concomitant]
     Active Substance: ASPIRIN
  10. STOOL SOFTENER (DOCUSATE) [Concomitant]
     Active Substance: DOCUSATE
  11. METFORMIN [Concomitant]
     Active Substance: METFORMIN HYDROCHLORIDE
     Dosage: 1000 MG, BID
     Dates: start: 2015
  12. QVAR [Concomitant]
     Active Substance: BECLOMETHASONE DIPROPIONATE
  13. SILDENAFIL. [Concomitant]
     Active Substance: SILDENAFIL
     Dosage: 80 MG, UNK
     Dates: start: 2015
  14. OMEPRAZOLE. [Concomitant]
     Active Substance: OMEPRAZOLE
  15. ATORVASTATINE [Concomitant]
     Active Substance: ATORVASTATIN
  16. MAGNESIUM OXIDE. [Concomitant]
     Active Substance: MAGNESIUM OXIDE
  17. CETIRIZINE [Concomitant]
     Active Substance: CETIRIZINE HYDROCHLORIDE

REACTIONS (5)
  - Catheterisation cardiac [Unknown]
  - Atrial septal defect repair [Recovering/Resolving]
  - Cardiac operation [Recovering/Resolving]
  - Ventricular septal defect repair [Recovering/Resolving]
  - Supraventricular tachycardia [Recovering/Resolving]

NARRATIVE: CASE EVENT DATE: 20180614
